FAERS Safety Report 25722305 (Version 1)
Quarter: 2025Q3

REPORT INFORMATION
  Report Type: Spontaneous
  Country: EU (occurrence: EU)
  Receive Date: 20250825
  Receipt Date: 20250825
  Transmission Date: 20251020
  Serious: Yes (Hospitalization)
  Sender: ELI LILLY AND COMPANY
  Company Number: EU-ELI_LILLY_AND_COMPANY-DE202508013633

PATIENT
  Sex: Male

DRUGS (2)
  1. RETEVMO [Suspect]
     Active Substance: SELPERCATINIB
     Indication: Non-small cell lung cancer
     Route: 065
  2. RETEVMO [Suspect]
     Active Substance: SELPERCATINIB
     Route: 065

REACTIONS (1)
  - Hepatic enzyme increased [Recovered/Resolved]
